FAERS Safety Report 15355831 (Version 1)
Quarter: 2018Q4

REPORT INFORMATION
  Report Type: Spontaneous
  Country: DE (occurrence: DE)
  Receive Date: 20180906
  Receipt Date: 20180906
  Transmission Date: 20190204
  Serious: Yes (Hospitalization, Other)
  Sender: FDA-Public Use
  Company Number: DE-TAIHO ONCOLOGY  INC-IM-2018-00068

PATIENT
  Age: 80 Year
  Sex: Male
  Weight: 98 kg

DRUGS (1)
  1. LONSURF [Suspect]
     Active Substance: TIPIRACIL HYDROCHLORIDE\TRIFLURIDINE
     Indication: COLORECTAL CANCER METASTATIC
     Dosage: UNK
     Route: 048
     Dates: start: 201704

REACTIONS (4)
  - Diarrhoea [Unknown]
  - Anaemia [Unknown]
  - Disease progression [Unknown]
  - Neutropenia [Unknown]

NARRATIVE: CASE EVENT DATE: 201710
